FAERS Safety Report 7827504-3 (Version None)
Quarter: 2011Q4

REPORT INFORMATION
  Report Type: 
  Country: None (occurrence: None)
  Receive Date: 20111020
  Receipt Date: 20111017
  Transmission Date: 20120403
  Serious: Yes (Other)
  Sender: FDA-Public Use
  Company Number: US-ROCHE-1005408

PATIENT

DRUGS (2)
  1. SIROLIMUS [Suspect]
     Indication: KIDNEY TRANSPLANT REJECTION
  2. MYCOPHENOLATE MOFETIL (CELLCEPT) [Suspect]
     Indication: KIDNEY TRANSPLANT REJECTION

REACTIONS (8)
  - MOUTH ULCERATION [None]
  - HYPERLIPIDAEMIA [None]
  - RASH [None]
  - PYREXIA [None]
  - PROTEINURIA [None]
  - OEDEMA [None]
  - PANCYTOPENIA [None]
  - PNEUMONITIS [None]
